FAERS Safety Report 11849687 (Version 1)
Quarter: 2015Q4

REPORT INFORMATION
  Report Type: Spontaneous
  Country: US (occurrence: None)
  Receive Date: 20151217
  Receipt Date: 20151217
  Transmission Date: 20160305
  Serious: No
  Sender: FDA-Public Use
  Company Number: None

PATIENT
  Age: 25 Year
  Sex: Female
  Weight: 56.7 kg

DRUGS (2)
  1. SUBOXONE [Suspect]
     Active Substance: BUPRENORPHINE HYDROCHLORIDE\NALOXONE HYDROCHLORIDE
     Indication: DRUG DEPENDENCE
     Dosage: SUBOXONE ONCE DAILY TAKEN UNDER THE TONGUE
     Route: 060
     Dates: start: 20150331, end: 20151216
  2. MELATONIN [Concomitant]
     Active Substance: MELATONIN

REACTIONS (3)
  - Oral pain [None]
  - Application site vesicles [None]
  - Application site pain [None]

NARRATIVE: CASE EVENT DATE: 20151211
